FAERS Safety Report 7999388-4 (Version None)
Quarter: 2011Q4

REPORT INFORMATION
  Report Type: 
  Country: None (occurrence: None)
  Receive Date: 20111221
  Receipt Date: 20111212
  Transmission Date: 20120403
  Serious: Yes (Hospitalization, Other)
  Sender: FDA-Public Use
  Company Number: US-ELI_LILLY_AND_COMPANY-US201107006521

PATIENT
  Sex: Male
  Weight: 126.98 kg

DRUGS (8)
  1. GLIPIZIDE [Concomitant]
     Indication: DIABETES MELLITUS
  2. HUMALOG [Concomitant]
     Indication: DIABETES MELLITUS
  3. LANTUS [Concomitant]
     Indication: DIABETES MELLITUS
  4. DIOVAN [Concomitant]
     Indication: HYPERTENSION
  5. FUROSEMIDE [Concomitant]
     Indication: FLUID RETENTION
  6. BYETTA [Suspect]
     Dosage: 5 UG, BID
     Dates: start: 20090916, end: 20090927
  7. ACTOS [Concomitant]
     Indication: DIABETES MELLITUS
  8. HYDROCHLOROTHIAZIDE [Concomitant]
     Indication: HYPERTENSION
     Dosage: UNK

REACTIONS (4)
  - RENAL FAILURE CHRONIC [None]
  - PANCREATITIS [None]
  - PAIN [None]
  - RENAL FAILURE ACUTE [None]
